FAERS Safety Report 8228506-8 (Version None)
Quarter: 2012Q1

REPORT INFORMATION
  Report Type: 
  Country: None (occurrence: None)
  Receive Date: 20120322
  Receipt Date: 20110518
  Transmission Date: 20120608
  Serious: No
  Sender: FDA-Public Use
  Company Number: US-BRISTOL-MYERS SQUIBB COMPANY-15763642

PATIENT
  Age: 80 Year
  Sex: Male

DRUGS (4)
  1. HYDROCORTISONE [Concomitant]
     Dates: start: 20110414
  2. DEMEROL [Concomitant]
     Dosage: 1DF:12.5 UNIT NOS
     Dates: start: 20110414
  3. BENADRYL [Concomitant]
     Dates: start: 20110414
  4. ERBITUX [Suspect]
     Dates: start: 20110414, end: 20110414

REACTIONS (1)
  - CHILLS [None]
